FAERS Safety Report 11843661 (Version 1)
Quarter: 2015Q4

REPORT INFORMATION
  Report Type: Spontaneous
  Country: US (occurrence: US)
  Receive Date: 20151217
  Receipt Date: 20151217
  Transmission Date: 20160305
  Serious: Yes (Death)
  Sender: FDA-Public Use
  Company Number: US-PAR PHARMACEUTICAL COMPANIES-2015SCPR014743

PATIENT
  Age: 42 Year
  Sex: Male

DRUGS (2)
  1. COCAINE [Suspect]
     Active Substance: COCAINE
     Indication: PRODUCT USED FOR UNKNOWN INDICATION
     Dosage: UNK, UNKNOWN, INHAL
  2. FENTANYL. [Suspect]
     Active Substance: FENTANYL
     Indication: PRODUCT USED FOR UNKNOWN INDICATION
     Dosage: UNK, UNKNOWN, INHAL

REACTIONS (6)
  - Poisoning [None]
  - Cardio-respiratory arrest [Fatal]
  - Respiratory arrest [None]
  - Death [Fatal]
  - Drug abuse [Fatal]
  - Cardiac arrest [None]

NARRATIVE: CASE EVENT DATE: 2014
